FAERS Safety Report 9405547 (Version 2)
Quarter: 2013Q3

REPORT INFORMATION
  Report Type: Spontaneous
  Country: FR (occurrence: None)
  Receive Date: 20130715
  Receipt Date: 20130719
  Transmission Date: 20140515
  Serious: Yes (Hospitalization)
  Sender: FDA-Public Use
  Company Number: 2013-002193

PATIENT
  Age: 80 Year
  Sex: Male

DRUGS (4)
  1. ACTONEL [Suspect]
     Indication: OSTEOPOROSIS
     Dosage: TWO CONSECUTIVE DAYS PER MONTH
     Route: 048
  2. METHOTREXATE (METHOTREXATE) [Concomitant]
  3. CORTANCYL (PREDNISONE) [Concomitant]
  4. SPECIAFOLDINE (FOLIC ACID) [Concomitant]

REACTIONS (1)
  - Cardiac disorder [None]
